FAERS Safety Report 19097162 (Version 1)
Quarter: 2021Q2

REPORT INFORMATION
  Report Type: Spontaneous
  Country: FR (occurrence: FR)
  Receive Date: 20210406
  Receipt Date: 20210406
  Transmission Date: 20210717
  Serious: Yes (Hospitalization)
  Sender: FDA-Public Use
  Company Number: FR-GLAXOSMITHKLINE-FRCH2021017193

PATIENT
  Age: 19 Year
  Sex: Female

DRUGS (6)
  1. ZOPICLONE [Suspect]
     Active Substance: ZOPICLONE
     Indication: TOXICITY TO VARIOUS AGENTS
     Dosage: UNK, UNSPECIFIED
     Route: 048
     Dates: start: 20201220, end: 20201220
  2. PAROXETINE. [Suspect]
     Active Substance: PAROXETINE
     Indication: TOXICITY TO VARIOUS AGENTS
     Dosage: UNK, UNSPECIFIED
     Route: 048
     Dates: start: 20201220, end: 20201220
  3. ALPRAZOLAM. [Suspect]
     Active Substance: ALPRAZOLAM
     Indication: TOXICITY TO VARIOUS AGENTS
     Dosage: UNK, UNSPECIFIED
     Route: 048
     Dates: start: 20201220, end: 20201220
  4. PARACETAMOL [Suspect]
     Active Substance: ACETAMINOPHEN
     Indication: TOXICITY TO VARIOUS AGENTS
     Dosage: UNK, UNSPECIFIED
     Route: 048
     Dates: start: 20201220, end: 20201220
  5. SPASFON (PHLOROGLUCINOL\TRIMETHYL1 PHLOROGLUCINOL) [Suspect]
     Active Substance: PHLOROGLUCINOL\1,3,5-TRIMETHOXYBENZENE
     Indication: TOXICITY TO VARIOUS AGENTS
     Dosage: UNK, UNSPECIFIED
     Route: 048
     Dates: start: 20201220, end: 20201220
  6. IBUPROFEN. [Suspect]
     Active Substance: IBUPROFEN
     Indication: TOXICITY TO VARIOUS AGENTS
     Dosage: UNK, UNSPECIFIED
     Route: 048
     Dates: start: 20201220, end: 20201220

REACTIONS (1)
  - Somnolence [Recovered/Resolved]

NARRATIVE: CASE EVENT DATE: 20201220
